FAERS Safety Report 9944837 (Version 1)
Quarter: 2014Q1

REPORT INFORMATION
  Report Type: Report from Study
  Country: US (occurrence: US)
  Receive Date: 20140303
  Receipt Date: 20140303
  Transmission Date: 20141002
  Serious: No
  Sender: FDA-Public Use
  Company Number: US-ABBVIE-13P-163-1053465-00

PATIENT
  Age: 44 Year
  Sex: Female
  Weight: 110.32 kg

DRUGS (8)
  1. HUMIRA [Suspect]
     Indication: COLITIS ULCERATIVE
     Dates: start: 201212, end: 201212
  2. HUMIRA [Suspect]
  3. HUMIRA [Suspect]
  4. PROPANOLOL [Concomitant]
     Indication: TREMOR
  5. TRAMADOL [Concomitant]
     Indication: PAIN IN EXTREMITY
  6. UNNAMED MEDICATION [Concomitant]
     Indication: ANXIETY
  7. UNNAMED MEDICATION [Concomitant]
     Indication: DEPRESSION
  8. AZATHIOPRINE [Concomitant]
     Indication: COLITIS ULCERATIVE

REACTIONS (2)
  - Inappropriate schedule of drug administration [Recovered/Resolved]
  - Medication error [Recovered/Resolved]
